FAERS Safety Report 17369871 (Version 1)
Quarter: 2020Q1

REPORT INFORMATION
  Report Type: Report from Study
  Country: None (occurrence: AT)
  Receive Date: 20200205
  Receipt Date: 20200205
  Transmission Date: 20200409
  Serious: Yes (Hospitalization)
  Sender: FDA-Public Use
  Company Number: AT-ABBVIE-20K-009-3260555-00

PATIENT
  Sex: Female

DRUGS (1)
  1. DUODOPA [Suspect]
     Active Substance: CARBIDOPA\LEVODOPA
     Indication: PARKINSON^S DISEASE
     Dosage: 16H??MD: 3ML, CR DAYTIME: 0.8ML/H, ED: 0.5ML
     Route: 050
     Dates: start: 20200128, end: 20200129

REACTIONS (5)
  - Disorientation [Not Recovered/Not Resolved]
  - Dizziness [Not Recovered/Not Resolved]
  - Urinary tract infection [Not Recovered/Not Resolved]
  - Nausea [Not Recovered/Not Resolved]
  - Vomiting [Not Recovered/Not Resolved]

NARRATIVE: CASE EVENT DATE: 20200129
